FAERS Safety Report 9015194 (Version 2)
Quarter: 2013Q1

REPORT INFORMATION
  Report Type: Spontaneous
  Country: US (occurrence: None)
  Receive Date: 20130103
  Receipt Date: 20130228
  Transmission Date: 20140127
  Serious: Yes (Other)
  Sender: FDA-Public Use
  Company Number: JPI-P-028101

PATIENT
  Age: 45 Year
  Sex: Male
  Weight: 77.11 kg

DRUGS (7)
  1. XYREM [Suspect]
     Indication: NARCOLEPSY
     Route: 048
     Dates: start: 201102
  2. XYREM [Suspect]
     Indication: SOMNOLENCE
     Route: 048
     Dates: start: 201102
  3. PROPRANOLOL [Concomitant]
  4. LANSOPRAZOLE [Concomitant]
  5. LISINOPRIL [Concomitant]
  6. ACYCLOVIR [Concomitant]
  7. AMPHETAMINE SALTS [Concomitant]

REACTIONS (5)
  - Nerve compression [None]
  - Intervertebral disc operation [None]
  - Therapy cessation [None]
  - Intervertebral disc protrusion [None]
  - Procedural pain [None]
